FAERS Safety Report 5588611-1 (Version None)
Quarter: 2007Q4

REPORT INFORMATION
  Report Type: 
  Country: None (occurrence: None)
  Receive Date: 20071212
  Receipt Date: 20071016
  Transmission Date: 20080405
  Serious: Yes (Other)
  Sender: FDA-Public Use
  Company Number: 2007RL000456

PATIENT
  Age: 56 Year
  Sex: Female
  Weight: 99.7913 kg

DRUGS (7)
  1. LOVAZA [Suspect]
     Indication: BLOOD TRIGLYCERIDES INCREASED
     Dosage: 2 GM;BID;PO ; 2GM;BID;PO
     Route: 048
     Dates: start: 20070701, end: 20070801
  2. LOVAZA [Suspect]
     Indication: BLOOD TRIGLYCERIDES INCREASED
     Dosage: 2 GM;BID;PO ; 2GM;BID;PO
     Route: 048
     Dates: start: 20070901
  3. MICARDIS HCT [Concomitant]
  4. COREG [Concomitant]
  5. SYNTHROID [Concomitant]
  6. BYETTA [Concomitant]
  7. ^ARMOUR TABS^ [Concomitant]

REACTIONS (2)
  - BLOOD PRESSURE INCREASED [None]
  - RASH PRURITIC [None]
